FAERS Safety Report 5735946-5 (Version None)
Quarter: 2008Q2

REPORT INFORMATION
  Report Type: 
  Country: None (occurrence: None)
  Receive Date: 20080509
  Receipt Date: 20080504
  Transmission Date: 20081010
  Serious: Yes (Other)
  Sender: FDA-Public Use
  Company Number: CHPA2008US07704

PATIENT
  Age: 66 Year
  Sex: Male

DRUGS (1)
  1. MAALOX ANTIACID/ANTIGAS MAX STR MULTI SYMPTOM (NCH)(MAGNESIUM HYDROXID [Suspect]
     Indication: STOMACH DISCOMFORT
     Dosage: 3 TSP, TID, ORAL
     Route: 048
     Dates: start: 20080401

REACTIONS (1)
  - FAECES DISCOLOURED [None]
